FAERS Safety Report 9815518 (Version 1)
Quarter: 2014Q1

REPORT INFORMATION
  Report Type: Report from Study
  Country: CA (occurrence: CA)
  Receive Date: 20140114
  Receipt Date: 20140114
  Transmission Date: 20141002
  Serious: Yes (Other)
  Sender: FDA-Public Use
  Company Number: CA-JNJFOC-20140104673

PATIENT
  Age: 19 Year
  Sex: Female
  Weight: 36.29 kg

DRUGS (4)
  1. REMICADE [Suspect]
     Indication: COLITIS ULCERATIVE
     Route: 042
     Dates: start: 20140107
  2. REMICADE [Suspect]
     Indication: COLITIS ULCERATIVE
     Dosage: 0,2 AND 6 WEEKS
     Route: 042
     Dates: start: 20131126
  3. BENADRYL [Suspect]
     Indication: PREMEDICATION
     Route: 042
     Dates: start: 20140107
  4. PREDNISONE [Concomitant]
     Route: 048

REACTIONS (7)
  - Infusion related reaction [Recovered/Resolved]
  - Nausea [Recovered/Resolved]
  - Dizziness [Recovered/Resolved]
  - Dyspnoea [Recovered/Resolved]
  - Flushing [Recovered/Resolved]
  - Local swelling [Recovered/Resolved]
  - Vomiting [Recovered/Resolved]
